FAERS Safety Report 12682475 (Version 1)
Quarter: 2016Q3

REPORT INFORMATION
  Report Type: Report from Study
  Country: US (occurrence: US)
  Receive Date: 20160825
  Receipt Date: 20160825
  Transmission Date: 20161109
  Serious: Yes (Hospitalization)
  Sender: FDA-Public Use
  Company Number: US-ROCHE-1670760

PATIENT
  Age: 61 Year
  Sex: Female
  Weight: 56.5 kg

DRUGS (47)
  1. PACKED RED BLOOD CELLS [Concomitant]
     Active Substance: HUMAN RED BLOOD CELL
     Indication: ANAEMIA
     Dosage: 1 UNIT
     Route: 065
     Dates: start: 20160105, end: 20160105
  2. NORMAL SALINE [Concomitant]
     Active Substance: SODIUM CHLORIDE
     Indication: PROPHYLAXIS
     Dosage: D 1 AND 2
     Route: 042
     Dates: start: 20151112, end: 20160107
  3. AMLODIPINE [Concomitant]
     Active Substance: AMLODIPINE BESYLATE
     Dosage: PRN
     Route: 048
     Dates: start: 20151210
  4. FOLIC ACID. [Concomitant]
     Active Substance: FOLIC ACID
     Dosage: INDICATION: SUPPLEMENT
     Route: 048
     Dates: start: 20151012
  5. TYLENOL [Concomitant]
     Active Substance: ACETAMINOPHEN
     Indication: PREMEDICATION
     Dosage: INDICATION- FEVER PROPHYLAXIS, PRN
     Route: 048
     Dates: start: 20151126, end: 20151126
  6. TYLENOL [Concomitant]
     Active Substance: ACETAMINOPHEN
     Route: 065
     Dates: start: 20160126, end: 20160126
  7. NEULASTA [Concomitant]
     Active Substance: PEGFILGRASTIM
     Indication: PROPHYLAXIS
     Dosage: SQ Q21DAY
     Route: 065
     Dates: start: 20151223, end: 20160121
  8. LASIX [Concomitant]
     Active Substance: FUROSEMIDE
     Indication: PREMEDICATION
     Route: 065
     Dates: start: 20160126, end: 20160126
  9. LASIX [Concomitant]
     Active Substance: FUROSEMIDE
     Route: 065
     Dates: start: 20160105, end: 20160105
  10. PACKED RED BLOOD CELLS [Concomitant]
     Active Substance: HUMAN RED BLOOD CELL
     Route: 065
     Dates: start: 20160126, end: 20160126
  11. ASPIRIN. [Concomitant]
     Active Substance: ASPIRIN
     Indication: PROPHYLAXIS
     Dosage: SUNDAY AND THURSDAY
     Route: 048
     Dates: start: 201508
  12. SIMVASTATIN. [Concomitant]
     Active Substance: SIMVASTATIN
     Indication: HYPERLIPIDAEMIA
     Route: 048
     Dates: start: 201508
  13. BENADRYL [Concomitant]
     Active Substance: DIPHENHYDRAMINE HYDROCHLORIDE
     Route: 065
     Dates: start: 20160126, end: 20160126
  14. NORMAL SALINE [Concomitant]
     Active Substance: SODIUM CHLORIDE
     Route: 040
     Dates: start: 20151126, end: 20151126
  15. TYLENOL PM [Concomitant]
     Active Substance: ACETAMINOPHEN\DIPHENHYDRAMINE
     Indication: INSOMNIA
     Dosage: PRN
     Route: 048
     Dates: start: 20151115
  16. AMLODIPINE [Concomitant]
     Active Substance: AMLODIPINE BESYLATE
     Route: 065
     Dates: start: 201508, end: 20160205
  17. OXYCODONE [Concomitant]
     Active Substance: OXYCODONE
     Indication: CHEST PAIN
     Dosage: PRN
     Route: 048
     Dates: start: 20151126, end: 20151126
  18. PROCRIT [Concomitant]
     Active Substance: ERYTHROPOIETIN
     Indication: ANAEMIA
     Route: 065
     Dates: start: 20160125, end: 20160125
  19. SODIUM CHLORIDE. [Concomitant]
     Active Substance: SODIUM CHLORIDE
     Route: 065
     Dates: start: 20160204, end: 20160205
  20. AMLODIPINE [Concomitant]
     Active Substance: AMLODIPINE BESYLATE
     Indication: HYPERTENSION
     Route: 048
     Dates: start: 201508, end: 20151209
  21. DOCUSATE-SENNA [Concomitant]
     Indication: CONSTIPATION PROPHYLAXIS
     Route: 065
     Dates: start: 20160130, end: 20160205
  22. ZOFRAN [Concomitant]
     Active Substance: ONDANSETRON HYDROCHLORIDE
     Indication: NAUSEA
     Dosage: PRN, ROUTE ORAL OR IV
     Route: 065
     Dates: start: 20151126
  23. MAGNESIUM OXIDE. [Concomitant]
     Active Substance: MAGNESIUM OXIDE
     Dosage: FOR SUPPLEMENT
     Route: 065
     Dates: start: 20160130, end: 20160205
  24. ZOFRAN [Concomitant]
     Active Substance: ONDANSETRON HYDROCHLORIDE
     Indication: PROPHYLAXIS OF NAUSEA AND VOMITING
     Dosage: D 1, 2, 8 AND 16
     Route: 042
     Dates: start: 20151112, end: 20160120
  25. DILAUDID [Concomitant]
     Active Substance: HYDROMORPHONE HYDROCHLORIDE
     Indication: CHEST PAIN
     Dosage: PRN
     Route: 042
     Dates: start: 20151126, end: 20151127
  26. ACETAMINOPHEN. [Concomitant]
     Active Substance: ACETAMINOPHEN
     Route: 065
     Dates: start: 20160130, end: 20160205
  27. ATEZOLIZUMAB [Suspect]
     Active Substance: ATEZOLIZUMAB
     Indication: NON-SMALL CELL LUNG CANCER
     Dosage: MOST DOSE PRIOR TO FIRST EPISODE OF LUNG INFECTION: 12/NOV/2015; MOST DOSE PRIOR TO SECOND EPISODE O
     Route: 042
     Dates: start: 20151112, end: 20160211
  28. CARBOPLATIN. [Suspect]
     Active Substance: CARBOPLATIN
     Indication: NON-SMALL CELL LUNG CANCER
     Dosage: LAST DOSE PRIOR TO SAE: 12 NOV 2015. MOST DOSE 340 MG PRIOR TO SAE: 06/JAN/2016
     Route: 042
     Dates: start: 20151112, end: 20160211
  29. ZOFRAN [Concomitant]
     Active Substance: ONDANSETRON HYDROCHLORIDE
     Indication: PREMEDICATION
     Dosage: PRN
     Route: 048
     Dates: start: 20151114
  30. BENADRYL [Concomitant]
     Active Substance: DIPHENHYDRAMINE HYDROCHLORIDE
     Indication: PREMEDICATION
     Dosage: DAY 1, 8 AND 15
     Route: 042
     Dates: start: 20151112, end: 20160106
  31. NORMAL SALINE [Concomitant]
     Active Substance: SODIUM CHLORIDE
     Indication: PREMEDICATION
     Dosage: 80 ML/HRINTRAVE; INDICATION: HYDRATION
     Route: 042
     Dates: start: 20151126, end: 20151128
  32. TYLENOL [Concomitant]
     Active Substance: ACETAMINOPHEN
     Route: 065
     Dates: start: 20160105, end: 20160105
  33. SODIUM CHLORIDE. [Concomitant]
     Active Substance: SODIUM CHLORIDE
     Indication: PROPHYLAXIS AGAINST DEHYDRATION
     Dosage: SODIUM CHLORIDE (0.9%) NS FOR HYDRATION
     Route: 065
     Dates: start: 20160129, end: 20160129
  34. HEPARIN FLUSH [Concomitant]
     Active Substance: HEPARIN SODIUM
     Dosage: FOR LOCK PORT FLUSH
     Route: 065
     Dates: start: 20160204, end: 20160205
  35. PHENERGAN [Concomitant]
     Active Substance: PROMETHAZINE HYDROCHLORIDE
     Indication: NAUSEA
     Route: 065
     Dates: start: 20160131, end: 20160205
  36. LIDOCAINE. [Concomitant]
     Active Substance: LIDOCAINE
     Indication: BRONCHOSCOPY
     Route: 065
     Dates: start: 20160204, end: 20160204
  37. ACETAMINOPHEN. [Concomitant]
     Active Substance: ACETAMINOPHEN
     Indication: PAIN
     Route: 048
     Dates: start: 20151127, end: 20151128
  38. NAB-PACLITAXEL [Suspect]
     Active Substance: PACLITAXEL
     Indication: NON-SMALL CELL LUNG CANCER
     Dosage: LAST DOSE PRIOR TO FIRST EPISODE OF LUNG INFECTION: 25/NOV/2015 AT 12:16; MOST DOSE 120.75 MG PRIOR
     Route: 042
     Dates: start: 20151112, end: 20160211
  39. COMPAZINE [Concomitant]
     Active Substance: PROCHLORPERAZINE MALEATE
     Indication: NAUSEA
     Route: 048
     Dates: start: 20151114
  40. PROTONIX [Concomitant]
     Active Substance: PANTOPRAZOLE SODIUM
     Indication: GASTROOESOPHAGEAL REFLUX DISEASE
     Route: 065
     Dates: start: 20160130
  41. DILAUDID [Concomitant]
     Active Substance: HYDROMORPHONE HYDROCHLORIDE
     Route: 065
     Dates: start: 20160130, end: 20160205
  42. BENADRYL [Concomitant]
     Active Substance: DIPHENHYDRAMINE HYDROCHLORIDE
     Route: 065
     Dates: start: 20160202, end: 20160202
  43. BENADRYL [Concomitant]
     Active Substance: DIPHENHYDRAMINE HYDROCHLORIDE
     Route: 065
     Dates: start: 20160105, end: 20160105
  44. PEPCID [Concomitant]
     Active Substance: FAMOTIDINE
     Indication: PREMEDICATION
     Dosage: D 1, 8 AND 15
     Route: 042
     Dates: start: 20151112, end: 20160120
  45. TYLENOL [Concomitant]
     Active Substance: ACETAMINOPHEN
     Dosage: PREMEDICATION IVIG
     Route: 065
     Dates: start: 20160202, end: 20160202
  46. PROCRIT [Concomitant]
     Active Substance: ERYTHROPOIETIN
     Route: 065
     Dates: start: 20160201, end: 20160205
  47. PRIVIGEN [Concomitant]
     Active Substance: HUMAN IMMUNOGLOBULIN G
     Dosage: FOR INVESITGATIONS OTHER: LOW IGG
     Route: 065
     Dates: start: 20160202, end: 20160202

REACTIONS (1)
  - Lung infection [Recovered/Resolved]

NARRATIVE: CASE EVENT DATE: 20151126
